FAERS Safety Report 22334646 (Version 3)
Quarter: 2023Q2

REPORT INFORMATION
  Report Type: Spontaneous
  Country: US (occurrence: US)
  Receive Date: 20230517
  Receipt Date: 20230607
  Transmission Date: 20230721
  Serious: No
  Sender: FDA-Public Use
  Company Number: US-BRISTOL-MYERS SQUIBB COMPANY-2023-069753

PATIENT
  Age: 65 Year
  Sex: Male

DRUGS (2)
  1. SPRYCEL [Suspect]
     Active Substance: DASATINIB
     Indication: Chronic myeloid leukaemia
     Route: 048
     Dates: start: 202304
  2. SPRYCEL [Suspect]
     Active Substance: DASATINIB
     Route: 048

REACTIONS (5)
  - Peripheral swelling [Unknown]
  - Gait disturbance [Unknown]
  - Dyspnoea [Recovering/Resolving]
  - Oedema peripheral [Not Recovered/Not Resolved]
  - Electrocardiogram change [Unknown]

NARRATIVE: CASE EVENT DATE: 20230504
